FAERS Safety Report 6049109-X (Version None)
Quarter: 2009Q1

REPORT INFORMATION
  Report Type: 
  Country: None (occurrence: None)
  Receive Date: 20090123
  Receipt Date: 20090112
  Transmission Date: 20090719
  Serious: Yes (Other)
  Sender: FDA-Public Use
  Company Number: GB-AVENTIS-200910574GDDC

PATIENT

DRUGS (3)
  1. GLIBENCLAMIDE [Suspect]
     Route: 048
  2. RIFAMPICIN [Suspect]
     Route: 042
  3. CIPROFLOXACIN [Suspect]
     Route: 042

REACTIONS (1)
  - HYPOGLYCAEMIA [None]
